FAERS Safety Report 18795760 (Version 2)
Quarter: 2021Q1

REPORT INFORMATION
  Report Type: Report from Study
  Country: NL (occurrence: NL)
  Receive Date: 20210127
  Receipt Date: 20210301
  Transmission Date: 20210419
  Serious: Yes (Hospitalization)
  Sender: FDA-Public Use
  Company Number: NL-BRISTOL-MYERS SQUIBB COMPANY-BMS-2021-005715

PATIENT
  Age: 78 Year
  Sex: Female

DRUGS (2)
  1. IPILIMUMAB [Suspect]
     Active Substance: IPILIMUMAB
     Indication: SALIVARY GLAND CANCER
     Dosage: 100.5 MILLIGRAM
     Route: 042
     Dates: start: 20201126, end: 20210114
  2. NIVOLUMAB [Suspect]
     Active Substance: NIVOLUMAB
     Indication: SALIVARY GLAND CANCER
     Dosage: 300 MILLIGRAM
     Route: 042
     Dates: start: 20201126, end: 20210114

REACTIONS (1)
  - Pain [Recovered/Resolved]

NARRATIVE: CASE EVENT DATE: 20210119
